FAERS Safety Report 10231808 (Version 1)
Quarter: 2014Q2

REPORT INFORMATION
  Report Type: Spontaneous
  Country: CN (occurrence: CN)
  Receive Date: 20140612
  Receipt Date: 20140612
  Transmission Date: 20141212
  Serious: Yes (Hospitalization, Other)
  Sender: FDA-Public Use
  Company Number: CN-GILEAD-2014-0104865

PATIENT
  Age: 50 Year
  Sex: Male

DRUGS (1)
  1. HEPSERA [Suspect]
     Indication: VIRAL INFECTION
     Dosage: 10MG PER DAY
     Route: 048
     Dates: start: 2007, end: 20131117

REACTIONS (4)
  - Osteomalacia [Not Recovered/Not Resolved]
  - Joint range of motion decreased [Not Recovered/Not Resolved]
  - Muscle spasms [Not Recovered/Not Resolved]
  - Hypophosphataemia [Not Recovered/Not Resolved]
